FAERS Safety Report 12744569 (Version 1)
Quarter: 2016Q3

REPORT INFORMATION
  Report Type: Spontaneous
  Country: US (occurrence: US)
  Receive Date: 20160914
  Receipt Date: 20160914
  Transmission Date: 20161109
  Serious: No
  Sender: FDA-Public Use
  Company Number: US-JAZZ-2016-US-009504

PATIENT
  Sex: Female

DRUGS (46)
  1. ADDERALL [Concomitant]
     Active Substance: AMPHETAMINE ASPARTATE\AMPHETAMINE SULFATE\DEXTROAMPHETAMINE SACCHARATE\DEXTROAMPHETAMINE SULFATE
     Dosage: 20 MG, UNK
  2. K-PHOS NEUTRAL [Concomitant]
     Active Substance: POTASSIUM PHOSPHATE\SODIUM PHOSPHATE
  3. LANTUS [Concomitant]
     Active Substance: INSULIN GLARGINE
  4. GELATIN [Concomitant]
     Active Substance: GELATIN
  5. NOVOLIN [Concomitant]
     Active Substance: INSULIN HUMAN
  6. NOVOLOG [Concomitant]
     Active Substance: INSULIN ASPART
  7. OXYCODONE HYDROCHLORIDE. [Concomitant]
     Active Substance: OXYCODONE HYDROCHLORIDE
  8. LISINOPRIL. [Concomitant]
     Active Substance: LISINOPRIL
  9. VITAMIN A [Concomitant]
     Active Substance: VITAMIN A
  10. XYREM [Suspect]
     Active Substance: SODIUM OXYBATE
     Indication: PRODUCT USED FOR UNKNOWN INDICATION
     Dosage: 2.25 G, BID
     Route: 048
     Dates: start: 200410, end: 200411
  11. XYREM [Suspect]
     Active Substance: SODIUM OXYBATE
     Dosage: DOSE ADJUSTMENTS
     Route: 048
  12. LABETALOL [Concomitant]
     Active Substance: LABETALOL\LABETALOL HYDROCHLORIDE
  13. SIMETHICONE (DIMETHICONE) [Concomitant]
     Active Substance: DIMETHICONE
  14. VITAMIN D3 [Concomitant]
     Active Substance: CHOLECALCIFEROL
  15. LEVEMIR [Concomitant]
     Active Substance: INSULIN DETEMIR
  16. GABAPENTIN. [Concomitant]
     Active Substance: GABAPENTIN
  17. POTASSIUM SODIUM TARTRATE [Concomitant]
     Active Substance: POTASSIUM SODIUM TARTRATE
  18. NEXIUM [Concomitant]
     Active Substance: ESOMEPRAZOLE MAGNESIUM
  19. CHLORTHALIDONE. [Concomitant]
     Active Substance: CHLORTHALIDONE
  20. LIDOCAINE. [Concomitant]
     Active Substance: LIDOCAINE
  21. MAGNESIUM [Concomitant]
     Active Substance: MAGNESIUM
  22. FENOFIBRATE. [Concomitant]
     Active Substance: FENOFIBRATE
  23. TRICOR [Concomitant]
     Active Substance: FENOFIBRATE
  24. XYREM [Suspect]
     Active Substance: SODIUM OXYBATE
     Dosage: 5.5 G, SECOND DOSE
     Route: 048
     Dates: start: 201602
  25. MODAFINIL. [Concomitant]
     Active Substance: MODAFINIL
  26. MIRAPEX [Concomitant]
     Active Substance: PRAMIPEXOLE DIHYDROCHLORIDE
  27. NOVOLOG [Concomitant]
     Active Substance: INSULIN ASPART
  28. ADDERALL [Concomitant]
     Active Substance: AMPHETAMINE ASPARTATE\AMPHETAMINE SULFATE\DEXTROAMPHETAMINE SACCHARATE\DEXTROAMPHETAMINE SULFATE
     Dosage: 30 MG, UNK
  29. VITAMIN B12 [Concomitant]
     Active Substance: CYANOCOBALAMIN
  30. NUVIGIL [Concomitant]
     Active Substance: ARMODAFINIL
  31. ATORVASTATIN [Concomitant]
     Active Substance: ATORVASTATIN
  32. CYCLOBENZAPRINE [Concomitant]
     Active Substance: CYCLOBENZAPRINE
  33. HYDROCORTISONE. [Concomitant]
     Active Substance: HYDROCORTISONE
  34. INSULIN [Concomitant]
     Active Substance: INSULIN NOS
  35. OMEGA 3 [Concomitant]
     Active Substance: OMEGA-3 FATTY ACIDS
  36. RITALIN [Concomitant]
     Active Substance: METHYLPHENIDATE HYDROCHLORIDE
  37. IRON [Concomitant]
     Active Substance: IRON
  38. VENLAFAXINE HCL [Concomitant]
     Active Substance: VENLAFAXINE HYDROCHLORIDE
  39. METFORMIN HCL [Concomitant]
     Active Substance: METFORMIN HYDROCHLORIDE
  40. XYREM [Suspect]
     Active Substance: SODIUM OXYBATE
     Dosage: 3.5 G, FIRST DOSE
     Route: 048
     Dates: start: 201602
  41. HUMALOG [Concomitant]
     Active Substance: INSULIN LISPRO
  42. TYLENOL EXTRA STRENGTH [Concomitant]
     Active Substance: ACETAMINOPHEN
  43. CLINDAMYCIN HCL [Concomitant]
     Active Substance: CLINDAMYCIN HYDROCHLORIDE
  44. TRAMADOL HCL [Concomitant]
     Active Substance: TRAMADOL HYDROCHLORIDE
  45. HYDROCHLOROTHIAZIDE. [Concomitant]
     Active Substance: HYDROCHLOROTHIAZIDE
  46. FOLIC ACID. [Concomitant]
     Active Substance: FOLIC ACID

REACTIONS (1)
  - Nightmare [Unknown]
